FAERS Safety Report 4803211-6 (Version None)
Quarter: 2005Q4

REPORT INFORMATION
  Report Type: 
  Country: None (occurrence: None)
  Receive Date: 20051013
  Receipt Date: 20050923
  Transmission Date: 20060501
  Serious: Yes (Other)
  Sender: FDA-Public Use
  Company Number: C-05-0045

PATIENT
  Age: 76 Year
  Sex: Female
  Weight: 55.3388 kg

DRUGS (9)
  1. NYSTATIN [Suspect]
     Indication: PHARYNGEAL CANDIDIASIS
     Dosage: ONE TSP ORALLY FOUR TIMES A DAY
     Route: 048
     Dates: start: 20050916
  2. PRILOSEC [Concomitant]
  3. IMDUR [Concomitant]
  4. FLUORINEF [Concomitant]
  5. CORTISONE ACETATE TAB [Concomitant]
  6. LEVOTHYROXINE [Concomitant]
  7. EVISTA [Concomitant]
  8. LIPITOR [Concomitant]
  9. VITAMIN D [Concomitant]

REACTIONS (9)
  - CHOKING [None]
  - DRUG HYPERSENSITIVITY [None]
  - DYSPNOEA [None]
  - ORAL PAIN [None]
  - PHARYNGOLARYNGEAL PAIN [None]
  - RETCHING [None]
  - SPEECH DISORDER [None]
  - STOMATITIS [None]
  - THROAT IRRITATION [None]
